FAERS Safety Report 7449710-2 (Version None)
Quarter: 2011Q1

REPORT INFORMATION
  Report Type: 
  Country: None (occurrence: None)
  Receive Date: 20110302
  Receipt Date: 20101202
  Transmission Date: 20110831
  Serious: No
  Sender: FDA-Public Use
  Company Number: 023145

PATIENT
  Sex: Male
  Weight: 86.2 kg

DRUGS (4)
  1. FOLIC ACID W/VITAMIN B12 [Concomitant]
  2. MERCAPTOPURINE [Concomitant]
  3. CIMZIA [Suspect]
     Indication: CROHN'S DISEASE
     Dosage: 400 MG, INDUCTION SUBCUTANEOUS
     Route: 058
     Dates: start: 20101108
  4. PHENERGAN HCL [Concomitant]

REACTIONS (2)
  - HEADACHE [None]
  - INJECTION SITE REACTION [None]
